FAERS Safety Report 16735872 (Version 3)
Quarter: 2019Q3

REPORT INFORMATION
  Report Type: Spontaneous
  Country: US (occurrence: US)
  Receive Date: 20190823
  Receipt Date: 20190917
  Transmission Date: 20191005
  Serious: No
  Sender: FDA-Public Use
  Company Number: US-PFIZER INC-2019361630

PATIENT
  Age: 57 Year
  Sex: Male
  Weight: 122.4 kg

DRUGS (1)
  1. LYRICA [Suspect]
     Active Substance: PREGABALIN
     Indication: NEUROPATHY PERIPHERAL
     Dosage: 125MG, THREE TIMES DAILY

REACTIONS (2)
  - Product use in unapproved indication [Unknown]
  - Off label use [Unknown]
